FAERS Safety Report 6793333-5 (Version None)
Quarter: 2010Q2

REPORT INFORMATION
  Report Type: 
  Country: None (occurrence: None)
  Receive Date: 20100624
  Receipt Date: 20091129
  Transmission Date: 20101027
  Serious: Yes (Death)
  Sender: FDA-Public Use
  Company Number: US-MYLANLABS-2009S1020705

PATIENT
  Age: 58 Year
  Sex: Male

DRUGS (6)
  1. CLOZAPINE [Suspect]
     Route: 048
  2. LEVOTHYROXINE [Concomitant]
     Route: 048
  3. PROPRANOLOL [Concomitant]
     Route: 048
  4. LACTULOSE [Concomitant]
     Route: 048
  5. CLONAZEPAM [Concomitant]
     Route: 048
  6. ALENDRONATE [Concomitant]
     Route: 048

REACTIONS (1)
  - DEATH [None]
